FAERS Safety Report 13303324 (Version 1)
Quarter: 2017Q1

REPORT INFORMATION
  Report Type: Spontaneous
  Country: US (occurrence: US)
  Receive Date: 20170307
  Receipt Date: 20170307
  Transmission Date: 20170428
  Serious: Yes (Other)
  Sender: FDA-Public Use
  Company Number: US-TEVA-745156USA

PATIENT
  Age: 54 Year
  Sex: Female

DRUGS (12)
  1. WARFARIN [Suspect]
     Active Substance: WARFARIN
     Indication: DEEP VEIN THROMBOSIS
     Dosage: 7.5 MILLIGRAM DAILY;
     Route: 048
     Dates: end: 201608
  2. PRASTERONE, DHEA [Concomitant]
     Route: 048
  3. ASCORBIC ACID (VITAMIN C) [Concomitant]
     Active Substance: ASCORBIC ACID
     Dosage: 1000 MILLIGRAM DAILY;
     Route: 048
  4. FLUDROCORTISONE [Concomitant]
     Active Substance: FLUDROCORTISONE
     Dosage: TAKE 1 1/2 TABLETS DAILY
     Route: 048
  5. HYDROCORTISONE. [Concomitant]
     Active Substance: HYDROCORTISONE
     Dosage: TOTAL MORNING DOSE:15MG
     Route: 048
  6. HYDROCORTISONE. [Concomitant]
     Active Substance: HYDROCORTISONE
     Dosage: 40MG AS NEEDED FOR STRESS DOSING
     Route: 048
  7. GENOTROPIN [Concomitant]
     Active Substance: SOMATROPIN
     Dosage: 5 DAYS A WEEK
     Route: 058
  8. MAGNESIUM CITRATE. [Concomitant]
     Active Substance: MAGNESIUM CITRATE
     Route: 048
  9. HYDROCORTISONE SOD SUCCINATE, PF, (SOLU-CORTEF,PF,) [Concomitant]
     Indication: ADRENOCORTICAL INSUFFICIENCY ACUTE
     Dosage: 100MG IM ONCE AS NEEDED
     Route: 030
  10. HYDROCORTISONE. [Concomitant]
     Active Substance: HYDROCORTISONE
     Dosage: TOTAL MORNING DOSE:15MG, 1 TABLET IN THE AFTERNOON
     Route: 048
  11. WARFARIN [Suspect]
     Active Substance: WARFARIN
     Dosage: 5 MILLIGRAM DAILY; SUNDAY
     Route: 048
  12. ESTRADIOL (VAGIFEM) [Concomitant]
     Dosage: 2 DAYS A WEEK
     Route: 067

REACTIONS (14)
  - Headache [Recovering/Resolving]
  - Oropharyngeal pain [Recovering/Resolving]
  - Hair texture abnormal [Recovering/Resolving]
  - Adrenocortical insufficiency acute [Unknown]
  - Dry skin [Recovering/Resolving]
  - Nasal congestion [Unknown]
  - Sleep disorder [Unknown]
  - Sinusitis [Unknown]
  - Skin discolouration [Recovering/Resolving]
  - Constipation [Recovering/Resolving]
  - Alopecia [Recovering/Resolving]
  - Malaise [Unknown]
  - Asthenia [Unknown]
  - Cushing^s syndrome [Unknown]

NARRATIVE: CASE EVENT DATE: 201310
